FAERS Safety Report 6571765-8 (Version None)
Quarter: 2010Q1

REPORT INFORMATION
  Report Type: 
  Country: None (occurrence: None)
  Receive Date: 20100205
  Receipt Date: 20100126
  Transmission Date: 20100710
  Serious: Yes (Hospitalization)
  Sender: FDA-Public Use
  Company Number: CO-JNJFOC-20100111314

PATIENT
  Age: 49 Year
  Sex: Male

DRUGS (5)
  1. REMICADE [Suspect]
     Indication: CROHN'S DISEASE
     Route: 042
  2. PREDNISOLONE [Concomitant]
  3. CARVEDILOL [Concomitant]
  4. ANTIBIOTIC [Concomitant]
     Indication: RASH
  5. ACETAMINOPHEN [Concomitant]
     Indication: RASH

REACTIONS (5)
  - ADVERSE EVENT [None]
  - CONJUNCTIVITIS [None]
  - HEADACHE [None]
  - INFECTION [None]
  - RASH [None]
